FAERS Safety Report 18348257 (Version 1)
Quarter: 2020Q4

REPORT INFORMATION
  Report Type: Spontaneous
  Country: US (occurrence: US)
  Receive Date: 20201005
  Receipt Date: 20201005
  Transmission Date: 20210114
  Serious: No
  Sender: FDA-Public Use
  Company Number: None

PATIENT
  Age: 46 Year
  Sex: Male

DRUGS (1)
  1. MAVYRET [Suspect]
     Active Substance: GLECAPREVIR\PIBRENTASVIR
     Indication: HEPATITIS C
     Dosage: ?          OTHER DOSE:100/40MG;?
     Route: 048
     Dates: start: 202008

REACTIONS (4)
  - Heart transplant [None]
  - Sepsis [None]
  - Gastric ulcer [None]
  - White blood cell count decreased [None]

NARRATIVE: CASE EVENT DATE: 20201002
